FAERS Safety Report 19139506 (Version 1)
Quarter: 2021Q2

REPORT INFORMATION
  Report Type: Spontaneous
  Country: AR (occurrence: AR)
  Receive Date: 20210415
  Receipt Date: 20210415
  Transmission Date: 20210717
  Serious: Yes (Other)
  Sender: FDA-Public Use
  Company Number: AR-ASTRAZENECA-2021A301297

PATIENT

DRUGS (1)
  1. FREVIA [Suspect]
     Active Substance: BUDESONIDE\FORMOTEROL
     Dosage: FREVIA IN THE MORNINGS AND RESCUERS DURING CRISIS, UNKNOWN UNKNOWN
     Route: 055

REACTIONS (2)
  - COVID-19 [Not Recovered/Not Resolved]
  - Asphyxia [Not Recovered/Not Resolved]

NARRATIVE: CASE EVENT DATE: 20210319
